FAERS Safety Report 8596682-3 (Version None)
Quarter: 2012Q3

REPORT INFORMATION
  Report Type: 
  Country: None (occurrence: None)
  Receive Date: 20120815
  Receipt Date: 20120813
  Transmission Date: 20120928
  Serious: Yes (Hospitalization, Other)
  Sender: FDA-Public Use
  Company Number: BR-ROCHE-1084541

PATIENT
  Sex: Female
  Weight: 85 kg

DRUGS (7)
  1. MABTHERA [Suspect]
     Indication: RHEUMATOID ARTHRITIS
     Route: 042
     Dates: start: 20110402, end: 20111212
  2. ARAVA [Concomitant]
  3. UNSPECIFIED DRUG [Concomitant]
     Indication: PAIN
  4. METHOTREXATE [Concomitant]
  5. MABTHERA [Suspect]
     Route: 042
     Dates: start: 20120802
  6. LEVOTHYROXINE SODIUM [Concomitant]
  7. LEVOTHYROXINE SODIUM [Concomitant]

REACTIONS (5)
  - INFLAMMATION [None]
  - WEIGHT INCREASED [None]
  - ANAPHYLACTIC SHOCK [None]
  - PAIN IN EXTREMITY [None]
  - HYPERTENSION [None]
